FAERS Safety Report 5120009-2 (Version None)
Quarter: 2006Q4

REPORT INFORMATION
  Report Type: 
  Country: None (occurrence: None)
  Receive Date: 20061003
  Receipt Date: 20060919
  Transmission Date: 20070319
  Serious: Yes (Hospitalization, Other)
  Sender: FDA-Public Use
  Company Number: US-BRISTOL-MYERS SQUIBB COMPANY-13513981

PATIENT
  Age: 53 Year
  Sex: Female
  Weight: 54 kg

DRUGS (3)
  1. COUMADIN [Suspect]
     Indication: HEART VALVE REPLACEMENT
     Dates: start: 20050208
  2. HYDROCODONE [Concomitant]
     Indication: PAIN
  3. DIGITEK [Concomitant]

REACTIONS (7)
  - AMNESIA [None]
  - ARTHRALGIA [None]
  - EAR PAIN [None]
  - HAEMORRHAGE [None]
  - MELAENA [None]
  - PAIN IN EXTREMITY [None]
  - TRANSIENT ISCHAEMIC ATTACK [None]
